FAERS Safety Report 20838505 (Version 1)
Quarter: 2022Q2

REPORT INFORMATION
  Report Type: Spontaneous
  Country: US (occurrence: None)
  Receive Date: 20220517
  Receipt Date: 20220517
  Transmission Date: 20220721
  Serious: No
  Sender: FDA-Public Use
  Company Number: 2022A186765

PATIENT
  Sex: Male
  Weight: 84.8 kg

DRUGS (1)
  1. FASENRA [Suspect]
     Active Substance: BENRALIZUMAB
     Indication: Asthma
     Route: 058

REACTIONS (4)
  - Cough [Unknown]
  - Hypersensitivity [Unknown]
  - Bacterial infection [Unknown]
  - Drug ineffective [Unknown]
